FAERS Safety Report 13256373 (Version 2)
Quarter: 2017Q1

REPORT INFORMATION
  Report Type: Spontaneous
  Country: US (occurrence: US)
  Receive Date: 20170221
  Receipt Date: 20170313
  Transmission Date: 20170428
  Serious: Yes (Death, Hospitalization, Other)
  Sender: FDA-Public Use
  Company Number: US-PFIZER INC-2017071945

PATIENT
  Age: 59 Year
  Sex: Male

DRUGS (13)
  1. MYCOBUTIN [Suspect]
     Active Substance: RIFABUTIN
     Indication: RESPIRATORY DISORDER
     Dosage: 150 MG, 2X/DAY
     Dates: start: 201603, end: 20170131
  2. CLARITHROMYCIN. [Concomitant]
     Active Substance: CLARITHROMYCIN
     Dosage: 1000 MG, DAILY [2 TABLETS]
     Dates: start: 201303, end: 20170131
  3. VFEND [Suspect]
     Active Substance: VORICONAZOLE
     Indication: RESPIRATORY DISORDER
     Dosage: 200 MG, 2X/DAY
     Dates: start: 201603, end: 20170131
  4. MYCOBUTIN [Suspect]
     Active Substance: RIFABUTIN
     Indication: MYCOBACTERIUM AVIUM COMPLEX INFECTION
  5. ETHAMBUTOL [Concomitant]
     Active Substance: ETHAMBUTOL HYDROCHLORIDE
     Dosage: 1000 MG, DAILY [2 TABLETS]
     Dates: start: 201303, end: 20170131
  6. FOLIC ACID. [Concomitant]
     Active Substance: FOLIC ACID
     Dosage: 1 MG, 2X/DAY
     Dates: start: 201001, end: 20170131
  7. VFEND [Suspect]
     Active Substance: VORICONAZOLE
     Indication: MYCOBACTERIUM AVIUM COMPLEX INFECTION
  8. IRON [Concomitant]
     Active Substance: IRON
     Dosage: 325 MG, DAILY
     Dates: start: 201405, end: 20170131
  9. ASPIRIN /00002701/ [Concomitant]
     Active Substance: ASPIRIN
     Dosage: 81 MG, DAILY
     Dates: start: 201001, end: 20170131
  10. PREDNISONE. [Concomitant]
     Active Substance: PREDNISONE
     Dosage: 20 MG, DAILY
     Dates: start: 201303, end: 20170131
  11. PROAIR HFA [Concomitant]
     Active Substance: ALBUTEROL SULFATE
     Dosage: 2 DF, 4X/DAY
     Route: 055
     Dates: start: 201303, end: 20170131
  12. SPIRIVA [Concomitant]
     Active Substance: TIOTROPIUM BROMIDE MONOHYDRATE
     Dosage: 1 DF, DAILY (1 PUFF DAILY)
     Route: 055
     Dates: start: 201303, end: 20170131
  13. ALBUTEROL SULFATE. [Concomitant]
     Active Substance: ALBUTEROL SULFATE
     Dosage: UNK, 4X/DAY
     Dates: start: 201303, end: 20170131

REACTIONS (2)
  - Respiratory failure [Fatal]
  - Product use issue [Unknown]
